FAERS Safety Report 5288777-7 (Version None)
Quarter: 2007Q2

REPORT INFORMATION
  Report Type: 
  Country: None (occurrence: None)
  Receive Date: 20070405
  Receipt Date: 20070329
  Transmission Date: 20071010
  Serious: Yes (Other)
  Sender: FDA-Public Use
  Company Number: GB-GILEAD-2007-0011802

PATIENT
  Sex: Female

DRUGS (3)
  1. TRUVADA [Suspect]
  2. FOSAMPRENAVIR [Concomitant]
  3. RITONAVIR [Concomitant]

REACTIONS (1)
  - HEPATOTOXICITY [None]
